FAERS Safety Report 7540999-8 (Version None)
Quarter: 2011Q2

REPORT INFORMATION
  Report Type: 
  Country: None (occurrence: None)
  Receive Date: 20110610
  Receipt Date: 20110607
  Transmission Date: 20111010
  Serious: Yes (Other)
  Sender: FDA-Public Use
  Company Number: GB-ABBOTT-11P-167-0730907-00

PATIENT
  Age: 43 Year
  Sex: Male

DRUGS (19)
  1. ANTIVIRAL UNSPECIFIED [Concomitant]
     Indication: HIV INFECTION
     Dates: start: 20070101
  2. PROPRANOLOL [Concomitant]
     Indication: MIGRAINE
     Dates: start: 20080101
  3. DILTIAZEM [Concomitant]
  4. RITONAVIR [Suspect]
     Indication: HIV INFECTION
     Dates: start: 20070101
  5. TENOFOVIR DISOPROXIL FUMARATE [Concomitant]
     Route: 065
  6. PROPRANOLOL [Concomitant]
  7. EMTRICITABINE [Concomitant]
     Indication: HIV INFECTION
     Dates: start: 20070101
  8. SUMATRIPTAN SUCCINATE [Concomitant]
     Indication: MIGRAINE
     Dosage: INTERMITTENT
     Dates: start: 20080101
  9. MARAVIROC [Concomitant]
     Indication: HIV INFECTION
  10. ATORVASTATIN [Concomitant]
     Indication: LIPIDS INCREASED
  11. DILTIAZEM [Concomitant]
     Indication: HYPERTENSION
  12. BENDROFLUMETHIAZIDE [Concomitant]
     Indication: PRODUCT USED FOR UNKNOWN INDICATION
  13. PERINDOPRIL ERBUMINE [Interacting]
     Indication: HYPERTENSION
     Dates: start: 20080101, end: 20090101
  14. ANTIVIRAL UNSPECIFIED [Concomitant]
     Route: 065
     Dates: start: 20070101
  15. RALTEGRAVIR [Concomitant]
     Indication: HIV INFECTION
  16. RAMIPRIL [Concomitant]
     Indication: HYPERTENSION
     Dosage: LOW DOSE
  17. IRBESARTAN [Concomitant]
     Indication: PRODUCT USED FOR UNKNOWN INDICATION
  18. DARUNAVIR ETHANOLATE [Interacting]
     Indication: HIV INFECTION
     Dates: start: 20070101
  19. TENOFOVIR DISOPROXIL FUMARATE [Concomitant]
     Indication: HIV INFECTION
     Route: 065
     Dates: start: 20070101

REACTIONS (4)
  - DRUG INTERACTION [None]
  - BLOOD CREATININE INCREASED [None]
  - DRUG LEVEL INCREASED [None]
  - RENAL IMPAIRMENT [None]
